FAERS Safety Report 23505238 (Version 7)
Quarter: 2025Q1

REPORT INFORMATION
  Report Type: Spontaneous
  Country: CA (occurrence: CA)
  Receive Date: 20240209
  Receipt Date: 20250314
  Transmission Date: 20250409
  Serious: Yes (Death, Life-Threatening, Hospitalization, Other)
  Sender: BOEHRINGER INGELHEIM
  Company Number: CA-BoehringerIngelheim-2024-BI-006868

PATIENT
  Age: 65 Year
  Sex: Male
  Weight: 96 kg

DRUGS (17)
  1. SPIRIVA [Suspect]
     Active Substance: TIOTROPIUM BROMIDE MONOHYDRATE
     Indication: Product used for unknown indication
     Dosage: 2 DOSAGE FORM
  2. SPIRIVA [Suspect]
     Active Substance: TIOTROPIUM BROMIDE MONOHYDRATE
  3. TAMSULOSIN [Suspect]
     Active Substance: TAMSULOSIN
     Indication: Product used for unknown indication
     Dosage: 1 DOSAGE FORM
  4. TAMSULOSIN [Suspect]
     Active Substance: TAMSULOSIN
  5. TAMSULOSIN [Suspect]
     Active Substance: TAMSULOSIN
     Dosage: 1 DOSAGE FORM
  6. TAMSULOSIN [Suspect]
     Active Substance: TAMSULOSIN
  7. TAMSULOSIN [Suspect]
     Active Substance: TAMSULOSIN
     Dosage: 1 DOSAGE FORM
  8. TAMSULOSIN [Suspect]
     Active Substance: TAMSULOSIN
  9. TAMSULOSIN [Suspect]
     Active Substance: TAMSULOSIN
  10. TAMSULOSIN [Suspect]
     Active Substance: TAMSULOSIN
  11. TAMSULOSIN [Suspect]
     Active Substance: TAMSULOSIN
  12. TAMSULOSIN [Suspect]
     Active Substance: TAMSULOSIN
     Dosage: 1 DOSAGE FORM
  13. TAMSULOSIN [Suspect]
     Active Substance: TAMSULOSIN
     Dosage: 1 DOSAGE FORM
  14. TAMSULOSIN [Suspect]
     Active Substance: TAMSULOSIN
  15. BUDESONIDE [Suspect]
     Active Substance: BUDESONIDE
     Indication: Product used for unknown indication
  16. BUDESONIDE [Suspect]
     Active Substance: BUDESONIDE
  17. BUDESONIDE [Suspect]
     Active Substance: BUDESONIDE

REACTIONS (40)
  - Therapeutic product effect incomplete [Fatal]
  - Wheezing [Fatal]
  - Thrombosis [Fatal]
  - Asthma [Fatal]
  - Full blood count abnormal [Fatal]
  - Lung disorder [Fatal]
  - Death [Fatal]
  - Pulmonary embolism [Fatal]
  - Neuritis [Fatal]
  - Antineutrophil cytoplasmic antibody positive [Fatal]
  - Pulmonary vasculitis [Fatal]
  - Pulmonary fibrosis [Fatal]
  - Obstructive airways disorder [Fatal]
  - Arteriosclerosis [Fatal]
  - Haemoptysis [Fatal]
  - Hypothyroidism [Fatal]
  - Spirometry abnormal [Fatal]
  - Mycotic allergy [Fatal]
  - Sleep disorder due to a general medical condition [Fatal]
  - Capillaritis [Fatal]
  - Mite allergy [Fatal]
  - Vasculitis [Fatal]
  - Dyspnoea [Fatal]
  - Arteriosclerosis coronary artery [Fatal]
  - Pulmonary alveolar haemorrhage [Fatal]
  - Respiratory symptom [Fatal]
  - Nodule [Fatal]
  - Conjunctivitis allergic [Fatal]
  - Pain in extremity [Fatal]
  - Total lung capacity abnormal [Fatal]
  - Loss of personal independence in daily activities [Fatal]
  - Hypoxia [Fatal]
  - Forced expiratory volume decreased [Fatal]
  - Eosinophilic granulomatosis with polyangiitis [Fatal]
  - Neurological symptom [Fatal]
  - Productive cough [Fatal]
  - Normochromic normocytic anaemia [Fatal]
  - Dust allergy [Fatal]
  - Condition aggravated [Fatal]
  - Anxiety [Fatal]
